FAERS Safety Report 17121510 (Version 1)
Quarter: 2019Q4

REPORT INFORMATION
  Report Type: Spontaneous
  Country: MY (occurrence: MY)
  Receive Date: 20191206
  Receipt Date: 20191206
  Transmission Date: 20200122
  Serious: Yes (Other)
  Sender: FDA-Public Use
  Company Number: MY-GLAXOSMITHKLINE-MY2019APC221131

PATIENT

DRUGS (1)
  1. VENTOLIN [Suspect]
     Active Substance: ALBUTEROL SULFATE
     Indication: BRONCHITIS
     Dosage: 2.5 MG, TID
     Route: 055

REACTIONS (2)
  - Staring [Recovered/Resolved]
  - Dystonia [Recovered/Resolved]
